FAERS Safety Report 25097339 (Version 1)
Quarter: 2025Q1

REPORT INFORMATION
  Report Type: Spontaneous
  Country: FR (occurrence: FR)
  Receive Date: 20250320
  Receipt Date: 20250320
  Transmission Date: 20250408
  Serious: Yes (Other)
  Sender: TEVA
  Company Number: FR-TEVA-VS-3309917

PATIENT

DRUGS (18)
  1. AZITHROMYCIN [Suspect]
     Active Substance: AZITHROMYCIN
     Indication: Skin test
     Route: 065
  2. AZITHROMYCIN [Suspect]
     Active Substance: AZITHROMYCIN
     Indication: Skin test
     Route: 023
  3. ROXITHROMYCIN [Concomitant]
     Active Substance: ROXITHROMYCIN
     Indication: Skin test
     Route: 023
  4. ROXITHROMYCIN [Concomitant]
     Active Substance: ROXITHROMYCIN
     Indication: Skin test
     Route: 065
  5. CLINDAMYCIN [Concomitant]
     Active Substance: CLINDAMYCIN
     Indication: Skin test
     Route: 065
  6. CLINDAMYCIN [Concomitant]
     Active Substance: CLINDAMYCIN
     Indication: Skin test
     Route: 023
  7. TELITHROMYCIN [Concomitant]
     Active Substance: TELITHROMYCIN
     Indication: Skin test
     Route: 065
  8. TELITHROMYCIN [Concomitant]
     Active Substance: TELITHROMYCIN
     Indication: Skin test
     Route: 023
  9. PRISTINAMYCIN [Suspect]
     Active Substance: PRISTINAMYCIN
     Indication: Antibiotic therapy
     Route: 065
  10. PRISTINAMYCIN [Suspect]
     Active Substance: PRISTINAMYCIN
     Indication: Antibiotic therapy
     Route: 048
  11. JOSAMYCIN [Concomitant]
     Active Substance: JOSAMYCIN
     Indication: Skin test
     Route: 023
  12. JOSAMYCIN [Concomitant]
     Active Substance: JOSAMYCIN
     Indication: Skin test
     Route: 065
  13. CLARITHROMYCIN [Concomitant]
     Active Substance: CLARITHROMYCIN
     Indication: Skin test
     Route: 023
  14. CLARITHROMYCIN [Concomitant]
     Active Substance: CLARITHROMYCIN
     Indication: Skin test
     Route: 065
  15. ERYTHROMYCIN [Concomitant]
     Active Substance: ERYTHROMYCIN
     Indication: Skin test
     Route: 065
  16. ERYTHROMYCIN [Concomitant]
     Active Substance: ERYTHROMYCIN
     Indication: Skin test
     Route: 023
  17. SPIRAMYCIN [Concomitant]
     Active Substance: SPIRAMYCIN
     Indication: Skin test
     Route: 065
  18. SPIRAMYCIN [Concomitant]
     Active Substance: SPIRAMYCIN
     Indication: Skin test
     Route: 023

REACTIONS (4)
  - Type I hypersensitivity [Unknown]
  - Anaphylactic reaction [Unknown]
  - Cross sensitivity reaction [Unknown]
  - Drug hypersensitivity [Unknown]
